FAERS Safety Report 9067581 (Version 1)
Quarter: 2013Q1

REPORT INFORMATION
  Report Type: Spontaneous
  Country: NL (occurrence: NL)
  Receive Date: 20130129
  Receipt Date: 20130129
  Transmission Date: 20140127
  Serious: Yes (Hospitalization)
  Sender: FDA-Public Use
  Company Number: PHHY2013NL006745

PATIENT
  Sex: Male

DRUGS (4)
  1. CO-DIOVAN [Suspect]
     Indication: HYPERTENSION
     Dosage: 1 DF(320/12.5MG), QD
     Dates: start: 20121217, end: 20130107
  2. LITHIUM CARBONATE [Suspect]
     Indication: BIPOLAR DISORDER
     Dosage: 900MG, DAILY
     Dates: start: 19800101, end: 20130107
  3. LORAZEPAM [Concomitant]
     Dosage: 2.5 MG, QD
     Dates: start: 20120101
  4. SEROQUEL XR [Concomitant]
     Dosage: 300 MG, QD
     Dates: start: 20120101

REACTIONS (2)
  - Psychiatric decompensation [Unknown]
  - Drug interaction [Unknown]
